FAERS Safety Report 9310951 (Version 1)
Quarter: 2013Q2

REPORT INFORMATION
  Report Type: Spontaneous
  Country: US (occurrence: None)
  Receive Date: 20130523
  Receipt Date: 20130523
  Transmission Date: 20140414
  Serious: No
  Sender: FDA-Public Use
  Company Number: None

PATIENT
  Age: 63 Year
  Sex: Male

DRUGS (1)
  1. ICLUSIG [Suspect]
     Dosage: 45MG QD PO
     Route: 048

REACTIONS (1)
  - Platelet count decreased [None]
